FAERS Safety Report 14986825 (Version 2)
Quarter: 2018Q2

REPORT INFORMATION
  Report Type: Spontaneous
  Country: US (occurrence: US)
  Receive Date: 20180608
  Receipt Date: 20180629
  Transmission Date: 20180711
  Serious: Yes (Hospitalization, Other)
  Sender: FDA-Public Use
  Company Number: US-ABBVIE-18K-163-2376926-00

PATIENT
  Age: 67 Year
  Sex: Female

DRUGS (4)
  1. HUMIRA [Suspect]
     Active Substance: ADALIMUMAB
     Route: 058
     Dates: start: 201704, end: 201705
  2. XELJANZ XR [Suspect]
     Active Substance: TOFACITINIB CITRATE
     Indication: RHEUMATOID ARTHRITIS
     Route: 065
  3. HUMIRA [Suspect]
     Active Substance: ADALIMUMAB
     Indication: RHEUMATOID ARTHRITIS
     Route: 058
  4. XELJANZ [Suspect]
     Active Substance: TOFACITINIB CITRATE
     Indication: PRODUCT USED FOR UNKNOWN INDICATION
     Route: 065

REACTIONS (11)
  - Vitamin D decreased [Unknown]
  - Road traffic accident [Unknown]
  - Drug ineffective [Unknown]
  - Road traffic accident [Unknown]
  - C-reactive protein increased [Unknown]
  - Pain in extremity [Recovering/Resolving]
  - Ligament rupture [Unknown]
  - Fracture [Unknown]
  - Meniscus injury [Unknown]
  - Meniscus injury [Unknown]
  - Drug level increased [Unknown]

NARRATIVE: CASE EVENT DATE: 201705
